FAERS Safety Report 26211419 (Version 1)
Quarter: 2025Q4

REPORT INFORMATION
  Report Type: Spontaneous
  Country: AR (occurrence: AR)
  Receive Date: 20251230
  Receipt Date: 20251230
  Transmission Date: 20260118
  Serious: Yes (Other)
  Sender: NOVARTIS
  Company Number: AR-002147023-NVSC2025AR197565

PATIENT
  Age: 57 Year
  Sex: Female

DRUGS (1)
  1. FINGOLIMOD [Suspect]
     Active Substance: FINGOLIMOD
     Indication: Multiple sclerosis
     Dosage: 0.5 MG, QD
     Route: 065

REACTIONS (9)
  - Eye infection toxoplasmal [Unknown]
  - Cataract [Unknown]
  - Retinitis [Unknown]
  - Vitritis [Unknown]
  - Febrile infection [Unknown]
  - Visual acuity reduced [Unknown]
  - Chorioretinal scar [Unknown]
  - Ocular icterus [Unknown]
  - Corneal lesion [Unknown]
